FAERS Safety Report 15919383 (Version 1)
Quarter: 2019Q1

REPORT INFORMATION
  Report Type: Spontaneous
  Country: US (occurrence: US)
  Receive Date: 20190205
  Receipt Date: 20190205
  Transmission Date: 20190417
  Serious: No
  Sender: FDA-Public Use
  Company Number: US-ROCHE-2090227

PATIENT
  Sex: Female

DRUGS (13)
  1. DOXEPIN HCL [Concomitant]
     Active Substance: DOXEPIN HYDROCHLORIDE
  2. CLOBETASOL [Concomitant]
     Active Substance: CLOBETASOL
     Route: 065
  3. PREDNISONE. [Concomitant]
     Active Substance: PREDNISONE
  4. AMOXICILLIN. [Concomitant]
     Active Substance: AMOXICILLIN
     Route: 065
  5. FLUTICASONE. [Concomitant]
     Active Substance: FLUTICASONE
     Route: 065
  6. ATORVASTATIN [Concomitant]
     Active Substance: ATORVASTATIN
     Route: 065
  7. OMEPRAZOLE. [Concomitant]
     Active Substance: OMEPRAZOLE
  8. BENADRYL + DYCLONE MOUTHRINSE [Concomitant]
     Active Substance: DIPHENHYDRAMINE HYDROCHLORIDE\DYCLONINE HYDROCHLORIDE
  9. XOLAIR [Suspect]
     Active Substance: OMALIZUMAB
     Indication: URTICARIA
     Dosage: ONGOING: UNKNOWN
     Route: 058
  10. AMLODIPINE [Concomitant]
     Active Substance: AMLODIPINE BESYLATE
     Route: 065
  11. FLUOCINONIDE-E CREAM [Concomitant]
     Route: 065
  12. LISOPRIL [Concomitant]
     Active Substance: LISINOPRIL
     Route: 065
  13. ZANTAC [Concomitant]
     Active Substance: RANITIDINE HYDROCHLORIDE

REACTIONS (3)
  - Rash [Unknown]
  - Off label use [Unknown]
  - Intentional product use issue [Unknown]
